FAERS Safety Report 5334670-0 (Version None)
Quarter: 2007Q2

REPORT INFORMATION
  Report Type: 
  Country: None (occurrence: None)
  Receive Date: 20070525
  Receipt Date: 20070522
  Transmission Date: 20071010
  Serious: Yes (Other)
  Sender: FDA-Public Use
  Company Number: B0472316A

PATIENT
  Age: 50 Year
  Sex: Female

DRUGS (1)
  1. ZYNTABAC [Suspect]
     Route: 065

REACTIONS (1)
  - POSTMENOPAUSAL HAEMORRHAGE [None]
